FAERS Safety Report 4365556-6 (Version None)
Quarter: 2004Q2

REPORT INFORMATION
  Report Type: 
  Country: None (occurrence: None)
  Receive Date: 20040526
  Receipt Date: 20030815
  Transmission Date: 20050107
  Serious: Yes (Other)
  Sender: FDA-Public Use
  Company Number: US-GLAXOSMITHKLINE-A0422181A

PATIENT

DRUGS (1)
  1. FORTAZ [Suspect]
     Indication: ILL-DEFINED DISORDER
     Route: 042
     Dates: start: 20030814

REACTIONS (2)
  - NEUTROPENIA [None]
  - PANCYTOPENIA [None]
